FAERS Safety Report 7629839-6 (Version None)
Quarter: 2011Q3

REPORT INFORMATION
  Report Type: 
  Country: None (occurrence: None)
  Receive Date: 20110722
  Receipt Date: 20110712
  Transmission Date: 20111222
  Serious: Yes (Other)
  Sender: FDA-Public Use
  Company Number: CA-JNJFOC-20110706406

PATIENT
  Sex: Male
  Weight: 73 kg

DRUGS (2)
  1. REMICADE [Suspect]
     Indication: COLITIS ULCERATIVE
     Route: 042
     Dates: start: 20110712
  2. REMICADE [Suspect]
     Route: 042
     Dates: start: 20100602

REACTIONS (3)
  - BACK PAIN [None]
  - INFUSION RELATED REACTION [None]
  - PALPITATIONS [None]
